FAERS Safety Report 17048360 (Version 1)
Quarter: 2019Q4

REPORT INFORMATION
  Report Type: Spontaneous
  Country: US (occurrence: US)
  Receive Date: 20191118
  Receipt Date: 20191118
  Transmission Date: 20200122
  Serious: Yes (Life-Threatening, Other)
  Sender: FDA-Public Use
  Company Number: None

PATIENT
  Age: 27 Year
  Sex: Female
  Weight: 65.25 kg

DRUGS (1)
  1. MIRENA [Suspect]
     Active Substance: LEVONORGESTREL
     Indication: CONTRACEPTION
     Dates: start: 20170731, end: 20191107

REACTIONS (3)
  - Uterine haemorrhage [None]
  - Pregnancy with contraceptive device [None]
  - Ectopic pregnancy [None]

NARRATIVE: CASE EVENT DATE: 20191107
